FAERS Safety Report 13320286 (Version 2)
Quarter: 2017Q1

REPORT INFORMATION
  Report Type: Spontaneous
  Country: DE (occurrence: DE)
  Receive Date: 20170310
  Receipt Date: 20170323
  Transmission Date: 20170428
  Serious: Yes (Hospitalization, Disabling)
  Sender: FDA-Public Use
  Company Number: DE-DRREDDYS-GER/GER/17/0087653

PATIENT
  Age: 43 Year
  Sex: Female
  Weight: 63 kg

DRUGS (3)
  1. CIPROBETA 500 MG FILMTABLETTEN [Suspect]
     Active Substance: CIPROFLOXACIN
     Indication: ABSCESS
     Route: 048
     Dates: start: 20170203, end: 20170205
  2. L-THYROXIN HENNING 125MCG [Concomitant]
     Indication: HYPOTHYROIDISM
     Dosage: ALTERNATELY TAKEN WITH 100 MCG
     Route: 048
  3. L-THYROXIN HENNING 100MCG [Concomitant]
     Indication: HYPOTHYROIDISM
     Dosage: ALTERNATELY TAKEN WITH 125 MCG
     Route: 048

REACTIONS (31)
  - Nausea [Not Recovered/Not Resolved]
  - Diarrhoea [Recovered/Resolved]
  - Abdominal pain upper [Not Recovered/Not Resolved]
  - Feeling cold [Recovered/Resolved]
  - Dizziness [Not Recovered/Not Resolved]
  - Gait disturbance [Not Recovered/Not Resolved]
  - Joint crepitation [Not Recovered/Not Resolved]
  - Muscle tightness [Not Recovered/Not Resolved]
  - Cardiac murmur [Not Recovered/Not Resolved]
  - Paraesthesia [Recovered/Resolved]
  - Pain [Not Recovered/Not Resolved]
  - Disturbance in attention [Not Recovered/Not Resolved]
  - Arthralgia [Not Recovered/Not Resolved]
  - Headache [Recovered/Resolved]
  - Restlessness [Not Recovered/Not Resolved]
  - Muscle spasms [Not Recovered/Not Resolved]
  - Muscle rigidity [Recovered/Resolved]
  - Vomiting [Not Recovered/Not Resolved]
  - Somnolence [Not Recovered/Not Resolved]
  - Confusional state [Not Recovered/Not Resolved]
  - Hypoaesthesia [Recovered/Resolved]
  - Pulmonary vascular disorder [Unknown]
  - Tremor [Not Recovered/Not Resolved]
  - Decreased appetite [Not Recovered/Not Resolved]
  - Burning sensation [Not Recovered/Not Resolved]
  - Syncope [Not Recovered/Not Resolved]
  - Apathy [Not Recovered/Not Resolved]
  - Anxiety [Not Recovered/Not Resolved]
  - Memory impairment [Not Recovered/Not Resolved]
  - Asthenia [Not Recovered/Not Resolved]
  - Insomnia [Not Recovered/Not Resolved]

NARRATIVE: CASE EVENT DATE: 20170203
